FAERS Safety Report 25349625 (Version 2)
Quarter: 2025Q3

REPORT INFORMATION
  Report Type: Report from Study
  Country: US (occurrence: US)
  Receive Date: 20250522
  Receipt Date: 20250702
  Transmission Date: 20251020
  Serious: Yes (Death, Hospitalization, Other)
  Sender: ABBVIE
  Company Number: US-ABBVIE-6293255

PATIENT
  Age: 83 Year
  Sex: Male
  Weight: 129 kg

DRUGS (3)
  1. CREON [Suspect]
     Active Substance: PANCRELIPASE AMYLASE\PANCRELIPASE LIPASE\PANCRELIPASE PROTEASE
     Indication: Pancreatic failure
     Route: 048
     Dates: start: 2019
  2. CREON [Suspect]
     Active Substance: PANCRELIPASE AMYLASE\PANCRELIPASE LIPASE\PANCRELIPASE PROTEASE
     Indication: Pancreatic failure
     Route: 048
     Dates: end: 20250414
  3. INSULIN NOS [Concomitant]
     Active Substance: INSULIN NOS
     Indication: Glucose tolerance impaired

REACTIONS (10)
  - Renal failure [Fatal]
  - Cardiac failure congestive [Fatal]
  - Fluid retention [Not Recovered/Not Resolved]
  - Dementia [Fatal]
  - Scratch [Recovered/Resolved]
  - Drug ineffective [Recovered/Resolved]
  - Localised infection [Recovered/Resolved]
  - Weight decreased [Not Recovered/Not Resolved]
  - Lymphoedema [Recovered/Resolved]
  - Erythema [Recovered/Resolved]

NARRATIVE: CASE EVENT DATE: 20240101
